FAERS Safety Report 16925138 (Version 1)
Quarter: 2019Q4

REPORT INFORMATION
  Report Type: Spontaneous
  Country: US (occurrence: US)
  Receive Date: 20191016
  Receipt Date: 20191016
  Transmission Date: 20200122
  Serious: Yes (Other)
  Sender: FDA-Public Use
  Company Number: None

PATIENT
  Age: 46 Year
  Sex: Male
  Weight: 73.35 kg

DRUGS (3)
  1. NOVOLOG [Concomitant]
     Active Substance: INSULIN ASPART
  2. NOVOLOG [Suspect]
     Active Substance: INSULIN ASPART
     Indication: TYPE 1 DIABETES MELLITUS
     Dosage: ?          QUANTITY:100 100 UNITS/ML;OTHER ROUTE:INSULIN PUMP?
     Dates: start: 20191012, end: 20191013
  3. MEDTRONIC INSULIN PUMP [Concomitant]

REACTIONS (2)
  - Product quality issue [None]
  - Blood glucose fluctuation [None]

NARRATIVE: CASE EVENT DATE: 20191013
